FAERS Safety Report 11245991 (Version 1)
Quarter: 2015Q3

REPORT INFORMATION
  Report Type: Spontaneous
  Country: US (occurrence: US)
  Receive Date: 20150708
  Receipt Date: 20150708
  Transmission Date: 20151125
  Serious: Yes (Other)
  Sender: FDA-Public Use
  Company Number: US-ROCHE-1604333

PATIENT
  Sex: Female
  Weight: 105.33 kg

DRUGS (1)
  1. XOLAIR [Suspect]
     Active Substance: OMALIZUMAB
     Indication: ASTHMA
     Route: 058
     Dates: start: 20150203

REACTIONS (3)
  - Dyspnoea [Not Recovered/Not Resolved]
  - Treatment failure [Unknown]
  - Wheezing [Not Recovered/Not Resolved]
